FAERS Safety Report 23088695 (Version 1)
Quarter: 2023Q4

REPORT INFORMATION
  Report Type: Report from Study
  Country: US (occurrence: US)
  Receive Date: 20231020
  Receipt Date: 20231020
  Transmission Date: 20240110
  Serious: Yes (Other)
  Sender: FDA-Public Use
  Company Number: US-MYLANLABS-2023M1109813

PATIENT
  Age: 80 Year
  Sex: Male
  Weight: 63.5 kg

DRUGS (1)
  1. YUPELRI [Suspect]
     Active Substance: REVEFENACIN
     Indication: Chronic obstructive pulmonary disease
     Dosage: 175 MICROGRAM, QD
     Route: 055
     Dates: start: 20230915, end: 20230922

REACTIONS (2)
  - Flushing [Recovered/Resolved]
  - Chest discomfort [Recovered/Resolved]

NARRATIVE: CASE EVENT DATE: 20230915
